FAERS Safety Report 8861422 (Version 3)
Quarter: 2013Q3

REPORT INFORMATION
  Report Type: Spontaneous
  Country: US (occurrence: None)
  Receive Date: 20120426
  Receipt Date: 20130724
  Transmission Date: 20140515
  Serious: Yes (Other)
  Sender: FDA-Public Use
  Company Number: PHEH2012US002479

PATIENT
  Age: 60 Year
  Sex: Female
  Weight: 77.1 kg

DRUGS (14)
  1. GILENYA [Suspect]
     Indication: MULTIPLE SCLEROSIS
     Route: 048
     Dates: start: 20120126
  2. CYMBALTA (DULOXETINE HYDROCHLORIDE) [Concomitant]
  3. VITAMIN B12 (CYANOCOBALAMIN) [Concomitant]
  4. VITAMIN E (TOCOPHEROL) [Concomitant]
  5. VITAMIN C [Concomitant]
  6. CLONAZEPAM (CLONAZEPAM) [Concomitant]
  7. XANAX (ALPRAZOLAM) [Concomitant]
  8. FLEXERIL (CYCLOBENZAPRINE HYDROCHLORIDE) [Concomitant]
  9. NEURONTIN (GABAPENTIN) [Concomitant]
  10. DRISDOL (ERGOCALCIFEROL) [Concomitant]
  11. ADDERALL XR (AMFETAMINE ASPARTATE, AMFETAMINE SULFATE, DEXAMFETAMINE SACCHARATE, DEXAMFETAMINE SULFATE) [Concomitant]
  12. REMERON (MIRTAZAPINE) [Concomitant]
  13. ROBAXIN (METHOCARBAMOL) [Concomitant]
  14. PROVIGIL (MODAFINIL) [Concomitant]

REACTIONS (10)
  - Nasal congestion [None]
  - Myalgia [None]
  - Sinus headache [None]
  - Nasopharyngitis [None]
  - Diarrhoea [None]
  - Muscle spasms [None]
  - Hypertension [None]
  - Dehydration [None]
  - Blood pressure increased [None]
  - Paranasal sinus discomfort [None]
